FAERS Safety Report 8582227-0 (Version None)
Quarter: 2012Q3

REPORT INFORMATION
  Report Type: 
  Country: None (occurrence: None)
  Receive Date: 20120809
  Receipt Date: 20120731
  Transmission Date: 20120928
  Serious: Yes (Hospitalization)
  Sender: FDA-Public Use
  Company Number: JP-ASTRAZENECA-2012SE54671

PATIENT
  Age: 63 Year
  Sex: Male

DRUGS (9)
  1. CRESTOR [Suspect]
     Route: 048
     Dates: start: 20120623
  2. MIGLITOL [Concomitant]
     Indication: DIABETES MELLITUS
     Route: 065
     Dates: start: 20120327
  3. AMLODIPINE [Concomitant]
     Indication: HYPERTENSION
     Route: 065
     Dates: start: 20120320
  4. LASIX [Concomitant]
     Route: 065
     Dates: start: 20120409
  5. TORSEMIDE [Concomitant]
     Route: 065
     Dates: start: 20120623
  6. GLIMICRON [Concomitant]
     Indication: DIABETES MELLITUS
     Route: 065
     Dates: start: 20120327
  7. OLMESARTAN MEDOXOMIL [Concomitant]
     Indication: HYPERTENSION
     Route: 065
     Dates: start: 20111121
  8. ASPARA POTASSIUM [Concomitant]
     Route: 048
     Dates: start: 20120623
  9. NESPO [Concomitant]
     Route: 065
     Dates: start: 20120730

REACTIONS (4)
  - PNEUMONIA [None]
  - CARDIAC FAILURE [None]
  - DEHYDRATION [None]
  - HYPOKALAEMIA [None]
